FAERS Safety Report 11254525 (Version 1)
Quarter: 2015Q3

REPORT INFORMATION
  Report Type: Spontaneous
  Country: US (occurrence: None)
  Receive Date: 20150708
  Receipt Date: 20150708
  Transmission Date: 20151125
  Serious: Yes (Other)
  Sender: FDA-Public Use
  Company Number: None

PATIENT
  Age: 9 Year
  Sex: Male
  Weight: 3.72 kg

DRUGS (1)
  1. TERBUTALINE [Suspect]
     Active Substance: TERBUTALINE
     Indication: EXPOSURE DURING PREGNANCY
     Dates: start: 20020708, end: 20021026

REACTIONS (2)
  - Hypertension [None]
  - Cardiac disorder [None]

NARRATIVE: CASE EVENT DATE: 20120724
